FAERS Safety Report 11390372 (Version 1)
Quarter: 2015Q3

REPORT INFORMATION
  Report Type: Spontaneous
  Country: US (occurrence: US)
  Receive Date: 20150818
  Receipt Date: 20150818
  Transmission Date: 20151125
  Serious: No
  Sender: FDA-Public Use
  Company Number: US-ROCHE-1348345

PATIENT
  Sex: Male

DRUGS (4)
  1. PEGASYS [Suspect]
     Active Substance: PEGINTERFERON ALFA-2A
     Indication: CHRONIC HEPATITIS C
     Route: 065
     Dates: start: 2004, end: 2005
  2. RIBAVIRIN. [Suspect]
     Active Substance: RIBAVIRIN
     Dosage: DIVIDED DOSES 600/400
     Route: 048
     Dates: start: 20140209
  3. PEGASYS [Suspect]
     Active Substance: PEGINTERFERON ALFA-2A
     Route: 058
     Dates: start: 20140209
  4. RIBAVIRIN. [Suspect]
     Active Substance: RIBAVIRIN
     Indication: CHRONIC HEPATITIS C
     Route: 065
     Dates: start: 2004, end: 2005

REACTIONS (8)
  - Gait disturbance [Unknown]
  - Pruritus [Unknown]
  - Urticaria [Recovered/Resolved]
  - Skin exfoliation [Unknown]
  - Insomnia [Unknown]
  - Eye swelling [Recovered/Resolved]
  - Fatigue [Unknown]
  - Malaise [Unknown]
